FAERS Safety Report 4330355-8 (Version None)
Quarter: 2004Q1

REPORT INFORMATION
  Report Type: 
  Country: None (occurrence: None)
  Receive Date: 20040329
  Receipt Date: 20040315
  Transmission Date: 20041129
  Serious: Yes (Hospitalization)
  Sender: FDA-Public Use
  Company Number: US068779

PATIENT
  Age: 55 Year
  Sex: Female

DRUGS (11)
  1. ETANERCEPT [Suspect]
     Indication: RHEUMATOID ARTHRITIS
     Dosage: 25 MG, 2 IN 1 WEEKS, SC
     Route: 058
     Dates: start: 20030212
  2. LOXOPROFEN [Suspect]
     Dosage: 60 MG, 3 IN 1 DAYS, PO
     Route: 048
     Dates: start: 19890421
  3. CONJUGATED ESTROGEN [Suspect]
     Dosage: 0.625 MG, 1 IN 1 DAYS
     Dates: start: 19990101
  4. MEDROXYPROGESTERONE ACETATE [Suspect]
     Dosage: 2.5 MG, 1 IN 1 DAYS, PO
     Route: 048
     Dates: start: 19990101
  5. KETOPROFEN [Concomitant]
  6. TEPRENONE [Concomitant]
  7. FLURBIPROFEN [Concomitant]
  8. RANITIDINE HYDROCHLORIDE [Concomitant]
  9. TOCOPHEROL CONCENTRATE CAP [Concomitant]
  10. VERAPAMIL HYDROCHLORIDE [Concomitant]
  11. BETAHISTINE MESILATE [Concomitant]

REACTIONS (2)
  - SUPRAVENTRICULAR TACHYCARDIA [None]
  - TACHYCARDIA [None]
